FAERS Safety Report 5797216-9 (Version None)
Quarter: 2008Q3

REPORT INFORMATION
  Report Type: 
  Country: None (occurrence: None)
  Receive Date: 20080701
  Receipt Date: 20080625
  Transmission Date: 20090109
  Serious: Yes (Other)
  Sender: FDA-Public Use
  Company Number: US-PFIZER INC-2008053321

PATIENT
  Sex: Female
  Weight: 63 kg

DRUGS (1)
  1. CELEBREX [Suspect]
     Indication: MYALGIA
     Route: 048
     Dates: start: 20080622, end: 20080624

REACTIONS (4)
  - DYSPNOEA [None]
  - EYE DISORDER [None]
  - TREMOR [None]
  - URTICARIA [None]
